FAERS Safety Report 23544309 (Version 1)
Quarter: 2024Q1

REPORT INFORMATION
  Report Type: Spontaneous
  Country: US (occurrence: US)
  Receive Date: 20240220
  Receipt Date: 20240220
  Transmission Date: 20240409
  Serious: No
  Sender: FDA-Public Use
  Company Number: US-BAYER-2024A026656

PATIENT
  Age: 32 Year
  Sex: Female

DRUGS (1)
  1. KYLEENA [Suspect]
     Active Substance: LEVONORGESTREL
     Indication: Intrauterine contraception
     Dosage: 17.5?G/DAY
     Route: 015
     Dates: start: 201902, end: 20240216

REACTIONS (6)
  - Abdominal pain [Recovering/Resolving]
  - Uterine cyst [None]
  - Uterine spasm [None]
  - Pelvic pain [None]
  - Nausea [None]
  - Gastrointestinal disorder [None]

NARRATIVE: CASE EVENT DATE: 20190201
